FAERS Safety Report 22782818 (Version 2)
Quarter: 2024Q2

REPORT INFORMATION
  Report Type: Report from Study
  Country: DE (occurrence: DE)
  Receive Date: 20230803
  Receipt Date: 20240402
  Transmission Date: 20240716
  Serious: Yes (Hospitalization, Other)
  Sender: FDA-Public Use
  Company Number: DE-SUN PHARMACEUTICAL INDUSTRIES LTD-2022RR-348568

PATIENT
  Age: 88 Year
  Sex: Female

DRUGS (5)
  1. SONIDEGIB [Suspect]
     Active Substance: SONIDEGIB
     Indication: Basal cell carcinoma
     Dosage: 200 MILLIGRAM, DAILY
     Route: 048
     Dates: start: 20220205
  2. SIMVASTATIN [Concomitant]
     Active Substance: SIMVASTATIN
     Indication: Pre-existing disease
     Dosage: 40 MILLIGRAM, DAILY
     Route: 048
  3. Trosopt [Concomitant]
     Indication: Pre-existing disease
     Dosage: 1 DROP TID
     Route: 065
  4. Vistagan [Concomitant]
     Indication: Pre-existing disease
     Dosage: 1 DROP BID
     Route: 065
  5. PILOCARPINE HYDROCHLORIDE [Concomitant]
     Active Substance: PILOCARPINE HYDROCHLORIDE
     Indication: Product used for unknown indication
     Dosage: 1 DROP DAILY
     Route: 065

REACTIONS (6)
  - Squamous cell carcinoma [Recovered/Resolved]
  - Muscle spasms [Recovered/Resolved]
  - Lethargy [Recovered/Resolved]
  - Dysgeusia [Recovered/Resolved]
  - Decreased appetite [Recovered/Resolved]
  - Weight decreased [Recovered/Resolved]

NARRATIVE: CASE EVENT DATE: 20230424
